FAERS Safety Report 6900176-8 (Version None)
Quarter: 2010Q3

REPORT INFORMATION
  Report Type: 
  Country: None (occurrence: None)
  Receive Date: 20100803
  Receipt Date: 20100720
  Transmission Date: 20110219
  Serious: Yes (Hospitalization)
  Sender: FDA-Public Use
  Company Number: SK-ELI_LILLY_AND_COMPANY-SK201007005413

PATIENT
  Age: 24 Year
  Sex: Male

DRUGS (1)
  1. ZYPADHERA [Suspect]
     Indication: SCHIZOPHRENIA
     Dosage: 300 MG, EVERY TWO WEEKS
     Route: 030
     Dates: start: 20100513

REACTIONS (2)
  - AGGRESSION [None]
  - SCHIZOPHRENIA [None]
